FAERS Safety Report 5066179-6 (Version None)
Quarter: 2006Q3

REPORT INFORMATION
  Report Type: 
  Country: None (occurrence: None)
  Receive Date: 20060705
  Receipt Date: 20051024
  Transmission Date: 20061208
  Serious: Yes (Hospitalization)
  Sender: FDA-Public Use
  Company Number: US-2005-020785

PATIENT
  Age: 48 Year
  Sex: Female
  Weight: 93.4 kg

DRUGS (3)
  1. YASMIN [Suspect]
     Indication: DYSFUNCTIONAL UTERINE BLEEDING
     Dosage: 1 TAB(S), 1X/DAY, ORAL
     Route: 048
     Dates: start: 20050623, end: 20050813
  2. ATENOLOL [Concomitant]
  3. EFFEXOR XR [Concomitant]

REACTIONS (1)
  - PULMONARY EMBOLISM [None]
